FAERS Safety Report 23218324 (Version 1)
Quarter: 2023Q4

REPORT INFORMATION
  Report Type: Spontaneous
  Country: US (occurrence: US)
  Receive Date: 20231122
  Receipt Date: 20231122
  Transmission Date: 20240109
  Serious: No
  Sender: FDA-Public Use
  Company Number: US-AUROBINDO-AUR-APL-2023-001610

PATIENT
  Age: 71 Year
  Sex: Female
  Weight: 62.5 kg

DRUGS (3)
  1. RISEDRONATE SODIUM [Suspect]
     Active Substance: RISEDRONATE SODIUM
     Indication: Osteoporosis
     Dosage: 1 DOSAGE FORM, EVERY MONTH
     Route: 065
     Dates: start: 20221101
  2. CALCIUM [Concomitant]
     Active Substance: CALCIUM
     Indication: Product used for unknown indication
     Dosage: UNK
     Route: 065
  3. MAGNESIUM [Concomitant]
     Active Substance: MAGNESIUM
     Indication: Product used for unknown indication
     Dosage: UNK
     Route: 065

REACTIONS (4)
  - Lip swelling [Recovering/Resolving]
  - Oesophageal spasm [Recovering/Resolving]
  - Swollen tongue [Recovering/Resolving]
  - Secretion discharge [Recovering/Resolving]
